FAERS Safety Report 13980414 (Version 2)
Quarter: 2017Q3

REPORT INFORMATION
  Report Type: Spontaneous
  Country: US (occurrence: US)
  Receive Date: 20170918
  Receipt Date: 20170927
  Transmission Date: 20171128
  Serious: Yes (Other)
  Sender: FDA-Public Use
  Company Number: US-AUROBINDO-AUR-APL-2017-40302

PATIENT
  Age: 53 Year
  Sex: Male

DRUGS (1)
  1. PREDNISONE. [Suspect]
     Active Substance: PREDNISONE
     Indication: RESPIRATORY TRACT INFECTION
     Dosage: 60 MG, UNK
     Route: 048

REACTIONS (4)
  - Proctalgia [Unknown]
  - Weight decreased [Unknown]
  - Haematochezia [Unknown]
  - Disseminated tuberculosis [Unknown]
